FAERS Safety Report 23880370 (Version 1)
Quarter: 2024Q2

REPORT INFORMATION
  Report Type: Spontaneous
  Country: US (occurrence: None)
  Receive Date: 20240521
  Receipt Date: 20240521
  Transmission Date: 20240716
  Serious: Yes (Hospitalization)
  Sender: FDA-Public Use
  Company Number: None

PATIENT
  Age: 41 Year
  Sex: Female
  Weight: 77 kg

DRUGS (1)
  1. CEFAZOLIN SODIUM [Suspect]
     Active Substance: CEFAZOLIN SODIUM
     Indication: Infection
     Dosage: 2 GM TID IV?
     Route: 042
     Dates: start: 20240429, end: 20240514

REACTIONS (2)
  - Injection site phlebitis [None]
  - Injection site pain [None]

NARRATIVE: CASE EVENT DATE: 20240506
